FAERS Safety Report 9386637 (Version 2)
Quarter: 2013Q3

REPORT INFORMATION
  Report Type: Spontaneous
  Country: VE (occurrence: VE)
  Receive Date: 20130708
  Receipt Date: 20130709
  Transmission Date: 20140515
  Serious: Yes (Life-Threatening)
  Sender: FDA-Public Use
  Company Number: PHHY2013VE071711

PATIENT
  Age: 67 Year
  Sex: Male

DRUGS (2)
  1. FORADIL [Suspect]
     Indication: BRONCHITIS CHRONIC
     Dosage: 1 DF, DAILY
     Route: 048
     Dates: end: 20130630
  2. MIFLONIDE [Suspect]
     Indication: BRONCHITIS CHRONIC
     Dosage: 1 DF, DAILY
     Route: 048
     Dates: end: 20130630

REACTIONS (2)
  - Apparent death [Not Recovered/Not Resolved]
  - Malaise [Recovering/Resolving]
